FAERS Safety Report 6956239-4 (Version None)
Quarter: 2010Q3

REPORT INFORMATION
  Report Type: 
  Country: None (occurrence: None)
  Receive Date: 20100826
  Receipt Date: 20100819
  Transmission Date: 20110219
  Serious: Yes (Hospitalization)
  Sender: FDA-Public Use
  Company Number: 2010BN000047

PATIENT
  Age: 7 Year
  Sex: Male

DRUGS (4)
  1. MELPHALAN HYDROCHLORIDE [Suspect]
     Dosage: 210 MG/M1
  2. CARBOPLATIN [Suspect]
     Dosage: 1000 MG/M2
  3. ETOPOSIDE [Suspect]
     Dosage: 640 MG/M2
  4. G-CSF (GRANULOCYTE COLONY STIMULATING FACTOR) [Suspect]
     Dosage: 5 UG/KG; BID

REACTIONS (2)
  - RENAL IMPAIRMENT [None]
  - VOMITING [None]
